FAERS Safety Report 8482797-7 (Version None)
Quarter: 2012Q3

REPORT INFORMATION
  Report Type: 
  Country: None (occurrence: None)
  Receive Date: 20120702
  Receipt Date: 20120627
  Transmission Date: 20120928
  Serious: Yes (Other)
  Sender: FDA-Public Use
  Company Number: GXKR2010US10127

PATIENT
  Age: 67 Year
  Sex: Male

DRUGS (9)
  1. TACROLIMUS [Suspect]
     Indication: IMMUNOSUPPRESSION
     Dosage: 1.5 MG, DAY
     Route: 065
  2. POSACONAZOLE [Suspect]
     Indication: IMMUNOSUPPRESSION
  3. PREDNISONE [Suspect]
     Indication: IMMUNOSUPPRESSION
     Dosage: 80 MG, PER DAY
     Route: 065
  4. PREDNISONE [Suspect]
     Dosage: 5 MG, PER DAY
     Route: 065
  5. MYCOPHENOLATE MOFETIL [Suspect]
     Dosage: 1000 MG, DAY
     Route: 065
  6. ACYCLOVIR [Suspect]
     Indication: IMMUNOSUPPRESSION
  7. TACROLIMUS [Suspect]
     Dosage: 0.5 MG, PER DAY
  8. MYCOPHENOLATE MOFETIL [Suspect]
     Indication: IMMUNOSUPPRESSION
     Dosage: 2000 MG, PER DAY
     Route: 065
  9. PREDNISONE [Suspect]
     Dosage: 10 MG, PER DAY
     Route: 065

REACTIONS (2)
  - NEUTROPHIL PELGER-HUET ANOMALY PRESENT [None]
  - PANCYTOPENIA [None]
